FAERS Safety Report 17512355 (Version 1)
Quarter: 2020Q1

REPORT INFORMATION
  Report Type: Spontaneous
  Country: FR (occurrence: FR)
  Receive Date: 20200306
  Receipt Date: 20200306
  Transmission Date: 20200409
  Serious: Yes (Hospitalization)
  Sender: FDA-Public Use
  Company Number: FR-MYLANLABS-2020M1023516

PATIENT
  Age: 42 Year
  Sex: Female

DRUGS (2)
  1. JASMINE                            /01502501/ [Suspect]
     Active Substance: DROSPIRENONE\ETHINYL ESTRADIOL
     Indication: HORMONAL CONTRACEPTION
     Dosage: UNK (CONCENTRATION 0.03/3 MG)
     Route: 048
     Dates: end: 201809
  2. ETHINYLESTRADIOL/LEVONORGESTREL [Suspect]
     Active Substance: ETHINYL ESTRADIOL\LEVONORGESTREL
     Indication: HORMONAL CONTRACEPTION
     Dosage: 1 DF, QD
     Route: 048
     Dates: start: 20190203, end: 20190222

REACTIONS (3)
  - Cerebral venous thrombosis [Unknown]
  - Transverse sinus thrombosis [Unknown]
  - Headache [Unknown]
